FAERS Safety Report 24324149 (Version 3)
Quarter: 2025Q1

REPORT INFORMATION
  Report Type: Spontaneous
  Country: US (occurrence: US)
  Receive Date: 20240916
  Receipt Date: 20250327
  Transmission Date: 20250409
  Serious: No
  Sender: BRISTOL-MYERS SQUIBB COMPANY
  Company Number: US-BRISTOL-MYERS SQUIBB COMPANY-2024-146167

PATIENT
  Age: 52 Year
  Sex: Female

DRUGS (3)
  1. REBLOZYL [Suspect]
     Active Substance: LUSPATERCEPT-AAMT
     Indication: Product used for unknown indication
     Route: 058
  2. REBLOZYL [Suspect]
     Active Substance: LUSPATERCEPT-AAMT
     Route: 042
  3. REBLOZYL [Suspect]
     Active Substance: LUSPATERCEPT-AAMT
     Dosage: STRENGTH: 75 MG AND 25MG
     Route: 058

REACTIONS (4)
  - Weight increased [Unknown]
  - Off label use [Unknown]
  - Weight decreased [Unknown]
  - Illness [Unknown]

NARRATIVE: CASE EVENT DATE: 20240911
